FAERS Safety Report 9984707 (Version 1)
Quarter: 2014Q1

REPORT INFORMATION
  Report Type: Spontaneous
  Country: US (occurrence: US)
  Receive Date: 20140307
  Receipt Date: 20140307
  Transmission Date: 20141002
  Serious: Yes (Death, Disabling)
  Sender: FDA-Public Use
  Company Number: US-MERCK-1403USA002925

PATIENT
  Sex: Female

DRUGS (1)
  1. JANUVIA [Suspect]
     Dosage: UNK
     Route: 048
     Dates: start: 200804

REACTIONS (2)
  - Adverse event [Not Recovered/Not Resolved]
  - Death [Fatal]
